FAERS Safety Report 25984857 (Version 1)
Quarter: 2025Q4

REPORT INFORMATION
  Report Type: Spontaneous
  Country: EU (occurrence: EU)
  Receive Date: 20251031
  Receipt Date: 20251031
  Transmission Date: 20260118
  Serious: Yes (Other)
  Sender: BRISTOL-MYERS SQUIBB COMPANY
  Company Number: EU-BRISTOL-MYERS SQUIBB COMPANY-2025-146410

PATIENT
  Age: 30 Year

DRUGS (2)
  1. IPILIMUMAB [Suspect]
     Active Substance: IPILIMUMAB
     Indication: Malignant melanoma
  2. NIVOLUMAB [Suspect]
     Active Substance: NIVOLUMAB
     Indication: Malignant melanoma
     Route: 042

REACTIONS (5)
  - Immune-mediated hepatic disorder [Unknown]
  - Gastrointestinal toxicity [Unknown]
  - Immune-mediated lung disease [Unknown]
  - Immune-mediated hyperthyroidism [Unknown]
  - Psoriasis [Unknown]
